FAERS Safety Report 9612525 (Version 2)
Quarter: 2013Q4

REPORT INFORMATION
  Report Type: Spontaneous
  Country: US (occurrence: US)
  Receive Date: 20131010
  Receipt Date: 20131121
  Transmission Date: 20140711
  Serious: Yes (Other)
  Sender: FDA-Public Use
  Company Number: US-JNJFOC-20131003500

PATIENT
  Age: 72 Year
  Sex: Male
  Weight: 112.95 kg

DRUGS (10)
  1. INVOKANA [Suspect]
     Indication: TYPE 2 DIABETES MELLITUS
     Route: 048
     Dates: start: 20130918, end: 20131003
  2. SYNTHROID [Concomitant]
     Indication: HYPOTHYROIDISM
  3. TRADJENTA [Concomitant]
     Indication: DIABETES MELLITUS
  4. LISINOPRIL HCTZ [Concomitant]
     Indication: HYPERTENSION
     Dosage: 20/2.5 MG
  5. METOPROLOL [Concomitant]
     Indication: HYPERTENSION
  6. SIMCOR [Concomitant]
     Indication: DYSLIPIDAEMIA
     Dosage: 1000/20 MG
  7. OMEPRAZOLE [Concomitant]
     Indication: GASTROOESOPHAGEAL REFLUX DISEASE
  8. MELOXICAM [Concomitant]
     Indication: OSTEOARTHRITIS
  9. GLUCOSAMINE [Concomitant]
     Indication: OSTEOARTHRITIS
  10. CO-ENZYME Q10 [Concomitant]

REACTIONS (5)
  - Benign prostatic hyperplasia [Unknown]
  - Pollakiuria [Unknown]
  - Urinary retention [Recovered/Resolved]
  - Urinary incontinence [Recovered/Resolved]
  - Dysphonia [Recovered/Resolved]
